FAERS Safety Report 15793917 (Version 1)
Quarter: 2019Q1

REPORT INFORMATION
  Report Type: Spontaneous
  Country: US (occurrence: US)
  Receive Date: 20190107
  Receipt Date: 20190107
  Transmission Date: 20190417
  Serious: No
  Sender: FDA-Public Use
  Company Number: US-SA-2019SA001553

PATIENT
  Age: 56 Year
  Sex: Female

DRUGS (1)
  1. LOVENOX [Suspect]
     Active Substance: ENOXAPARIN SODIUM
     Dosage: UNK, Q12H
     Route: 042
     Dates: start: 201809, end: 201809

REACTIONS (5)
  - Injection site pain [Unknown]
  - Infection [Unknown]
  - Wound [Unknown]
  - Oral pain [Unknown]
  - Burning sensation [Unknown]
